FAERS Safety Report 5683597-3 (Version None)
Quarter: 2008Q1

REPORT INFORMATION
  Report Type: 
  Country: None (occurrence: None)
  Receive Date: 20080328
  Receipt Date: 20061116
  Transmission Date: 20080703
  Serious: No
  Sender: FDA-Public Use
  Company Number: US-BAYER-US-2006-016433

PATIENT
  Age: 37 Year
  Sex: Female
  Weight: 54 kg

DRUGS (1)
  1. MIRENA [Suspect]
     Indication: CONTRACEPTION
     Route: 015
     Dates: start: 20060322, end: 20060726

REACTIONS (6)
  - ANXIETY [None]
  - DEPRESSION [None]
  - DYSPNOEA [None]
  - MOOD SWINGS [None]
  - RASH GENERALISED [None]
  - STRESS [None]
